FAERS Safety Report 9518300 (Version 1)
Quarter: 2013Q1

REPORT INFORMATION
  Report Type: Spontaneous
  Country: US (occurrence: None)
  Receive Date: 20130305
  Receipt Date: 20130305
  Transmission Date: 20140127
  Serious: Yes (Other)
  Sender: FDA-Public Use
  Company Number: 163-21880-12070414

PATIENT
  Age: 61 Year
  Sex: Female
  Weight: 78.02 kg

DRUGS (21)
  1. REVLIMID (LENALIDOMIDE) (CAPSULES) [Suspect]
     Indication: PLASMA CELL MYELOMA
     Route: 048
     Dates: start: 20110223
  2. VALACYCLOVIR (VALACICLOVIR HYDROCHLORIDE) [Concomitant]
  3. METOPROLOL (METOPROLOL) [Concomitant]
  4. ESTER-C (CALCIUM ASCORBATE) [Concomitant]
  5. PRILOSEC [Concomitant]
  6. ZOMETA (ZOLENDRONIC ACID) [Concomitant]
  7. CALTRATE (CALCIUM CARBONATE) [Concomitant]
  8. LORATIDINE [Concomitant]
  9. AZITHROMYCIN (AZITHROMYCIN) [Concomitant]
  10. DOXAZOSIN (DOXAZOSIN) [Concomitant]
  11. OMEPRAZOLE (OMEPRAZOLE) [Concomitant]
  12. FLONASE (FLUTICASONE PROPIONATE) [Concomitant]
  13. CRESTOR (ROSUVASTATIN) [Concomitant]
  14. WARFARIN (WARFARIN) [Suspect]
  15. HYDROMET (ALDORIL) [Concomitant]
  16. VITAMINS [Concomitant]
  17. RANTIDINE (RANITIDINE) [Concomitant]
  18. ASPIRIN (ACETYLSALICYLIC ACID) [Suspect]
  19. MUCINEX ER (GUAIFEESIN) [Concomitant]
  20. FLAX SEED OIL (LINSEED OIL) [Concomitant]
  21. FEOSOL (FERROUS SULFATE) [Concomitant]

REACTIONS (2)
  - Immunosuppression [None]
  - Bronchitis [None]
